FAERS Safety Report 24163160 (Version 2)
Quarter: 2024Q3

REPORT INFORMATION
  Report Type: Spontaneous
  Country: NZ (occurrence: NZ)
  Receive Date: 20240801
  Receipt Date: 20240816
  Transmission Date: 20241016
  Serious: Yes (Life-Threatening)
  Sender: TEVA
  Company Number: NZ-TEVA-VS-3226553

PATIENT
  Age: 23 Year
  Sex: Female

DRUGS (4)
  1. LAMOTRIGINE [Suspect]
     Active Substance: LAMOTRIGINE
     Indication: Epilepsy
     Dosage: INITIAL DOSAGE UNKNOWN, AND THEN INCREASED
     Route: 065
  2. LAMOTRIGINE [Suspect]
     Active Substance: LAMOTRIGINE
     Indication: Epilepsy
     Route: 065
  3. LEVETIRACETAM [Concomitant]
     Active Substance: LEVETIRACETAM
     Indication: Epilepsy
     Route: 065
  4. LEVETIRACETAM [Concomitant]
     Active Substance: LEVETIRACETAM
     Indication: Epilepsy
     Dosage: LATER DOSE INCREASED
     Route: 065

REACTIONS (1)
  - Generalised pustular psoriasis [Recovered/Resolved with Sequelae]
